FAERS Safety Report 13817217 (Version 1)
Quarter: 2017Q3

REPORT INFORMATION
  Report Type: Spontaneous
  Country: US (occurrence: US)
  Receive Date: 20170731
  Receipt Date: 20170731
  Transmission Date: 20171127
  Serious: No
  Sender: FDA-Public Use
  Company Number: US-PFIZER INC-2017326426

PATIENT
  Sex: Female

DRUGS (7)
  1. LYRICA [Suspect]
     Active Substance: PREGABALIN
     Dosage: 75 MG, UNK
  2. BACLOFEN. [Suspect]
     Active Substance: BACLOFEN
     Dosage: 10 MG, UNK
  3. MORPHINE SULFATE. [Suspect]
     Active Substance: MORPHINE SULFATE
     Dosage: 30 MG, UNK
  4. OXYCODONE [Suspect]
     Active Substance: OXYCODONE
     Dosage: 10 MG, UNK
  5. DOXEPIN HCL [Suspect]
     Active Substance: DOXEPIN HYDROCHLORIDE
     Dosage: 50 MG, UNK
  6. PERCOCET [Suspect]
     Active Substance: ACETAMINOPHEN\OXYCODONE HYDROCHLORIDE
     Dosage: 10 MG, UNK
  7. CLONAZEPAM. [Suspect]
     Active Substance: CLONAZEPAM
     Dosage: 1 DF, UNK

REACTIONS (3)
  - Lethargy [Unknown]
  - Balance disorder [Unknown]
  - Dysarthria [Unknown]
